FAERS Safety Report 8362521-9 (Version None)
Quarter: 2012Q2

REPORT INFORMATION
  Report Type: 
  Country: None (occurrence: None)
  Receive Date: 20120514
  Receipt Date: 20120503
  Transmission Date: 20120825
  Serious: Yes (Hospitalization)
  Sender: FDA-Public Use
  Company Number: 2012042013

PATIENT
  Age: 73 Year
  Sex: Male

DRUGS (6)
  1. DALTEPARIN SODIUM [Suspect]
     Indication: LUNG NEOPLASM MALIGNANT
     Dosage: SUBCUTANEOUS, 15000 IU DAILY,
     Route: 058
     Dates: start: 20120213
  2. DALTEPARIN SODIUM [Suspect]
     Indication: LUNG NEOPLASM MALIGNANT
     Dosage: SUBCUTANEOUS, 15000 IU DAILY,
     Route: 058
     Dates: start: 20111121
  3. SIMVASTATIN [Concomitant]
  4. AMLODIPINE [Concomitant]
  5. ZOLPIDEM [Concomitant]
  6. AMLODIPINE BESYLATE [Concomitant]

REACTIONS (2)
  - DYSPNOEA [None]
  - CHEST PAIN [None]
